FAERS Safety Report 7661131-6 (Version None)
Quarter: 2011Q3

REPORT INFORMATION
  Report Type: 
  Country: None (occurrence: None)
  Receive Date: 20110805
  Receipt Date: 20100924
  Transmission Date: 20111222
  Serious: No
  Sender: FDA-Public Use
  Company Number: US-ABBOTT-10P-163-0672949-00

PATIENT
  Sex: Female

DRUGS (7)
  1. NIASPAN [Suspect]
     Dosage: 1 AT BEDTIME
  2. NIASPAN [Suspect]
     Indication: DYSLIPIDAEMIA
     Dosage: 2 AT BEDTIME
     Route: 048
  3. HYDROCHLOROTHIAZIDE [Concomitant]
     Indication: PRODUCT USED FOR UNKNOWN INDICATION
     Route: 048
  4. ASPIRIN [Concomitant]
     Indication: PRODUCT USED FOR UNKNOWN INDICATION
     Route: 048
  5. BENICAR [Concomitant]
     Indication: PRODUCT USED FOR UNKNOWN INDICATION
     Route: 048
  6. SIMVASTATIN [Concomitant]
     Indication: PRODUCT USED FOR UNKNOWN INDICATION
     Route: 048
  7. NIASPAN [Suspect]
     Dates: start: 20090901

REACTIONS (4)
  - FEELING HOT [None]
  - PAIN [None]
  - FLUSHING [None]
  - PRURITUS [None]
